FAERS Safety Report 7226255-6 (Version None)
Quarter: 2011Q1

REPORT INFORMATION
  Report Type: 
  Country: None (occurrence: None)
  Receive Date: 20110114
  Receipt Date: 20110105
  Transmission Date: 20110831
  Serious: Yes (Hospitalization, Other)
  Sender: FDA-Public Use
  Company Number: PHHO2010KR17475

PATIENT
  Sex: Male
  Weight: 69 kg

DRUGS (1)
  1. AFINITOR [Suspect]
     Indication: PHAEOCHROMOCYTOMA
     Dosage: 10 MG
     Route: 048
     Dates: start: 20101005, end: 20101101

REACTIONS (10)
  - ASTHENIA [None]
  - SKIN TURGOR DECREASED [None]
  - BLOOD CREATININE INCREASED [None]
  - DEHYDRATION [None]
  - THROMBOCYTOPENIA [None]
  - HYPOPHAGIA [None]
  - DYSURIA [None]
  - ACUTE PRERENAL FAILURE [None]
  - VOMITING [None]
  - NAUSEA [None]
